FAERS Safety Report 15241815 (Version 1)
Quarter: 2018Q3

REPORT INFORMATION
  Report Type: Spontaneous
  Country: US (occurrence: US)
  Receive Date: 20180712
  Receipt Date: 20180712
  Transmission Date: 20181010
  Serious: Yes (Other)
  Sender: FDA-Public Use
  Company Number: None

PATIENT
  Age: 65 Year
  Sex: Male
  Weight: 90.26 kg

DRUGS (2)
  1. FLUTICASONE PROPIONATE NASAL SPRAY 50MCGPER SPRAY [Suspect]
     Active Substance: FLUTICASONE PROPIONATE
     Indication: NASAL CONGESTION
     Route: 045
     Dates: start: 20171012
  2. FLUTICASONE PROPIONATE NASAL SPRAY 50MCGPER SPRAY [Suspect]
     Active Substance: FLUTICASONE PROPIONATE
     Indication: MULTIPLE ALLERGIES
     Route: 045
     Dates: start: 20171012

REACTIONS (1)
  - Rhinalgia [None]

NARRATIVE: CASE EVENT DATE: 20171212
